FAERS Safety Report 21284440 (Version 1)
Quarter: 2022Q3

REPORT INFORMATION
  Report Type: Spontaneous
  Country: CN (occurrence: None)
  Receive Date: 20220902
  Receipt Date: 20220902
  Transmission Date: 20221026
  Serious: Yes (Hospitalization)
  Sender: FDA-Public Use
  Company Number: CN-Merck Healthcare KGaA-9346968

PATIENT
  Age: 26 Year
  Sex: Female
  Weight: 65 kg

DRUGS (6)
  1. GONAL-F [Suspect]
     Active Substance: FOLLITROPIN
     Indication: Infertility female
     Route: 058
     Dates: start: 20220701, end: 20220705
  2. CRINONE [Suspect]
     Active Substance: PROGESTERONE
     Indication: In vitro fertilisation
     Route: 067
     Dates: start: 20220716, end: 20220718
  3. LUVERIS [Suspect]
     Active Substance: LUTROPIN ALFA
     Indication: Infertility female
     Route: 058
     Dates: start: 20220627, end: 20220708
  4. DUPHASTON [Suspect]
     Active Substance: DYDROGESTERONE
     Indication: In vitro fertilisation
     Route: 048
     Dates: start: 20220711, end: 20220716
  5. MENOPUR [Suspect]
     Active Substance: FOLLITROPIN\LUTEINIZING HORMONE
     Indication: Infertility female
     Dosage: HIGHLY PURIFIED MENOTROPHIN FOR INJECTION
     Route: 058
     Dates: start: 20220706, end: 20220708
  6. FOLLITROPIN ALFA [Suspect]
     Active Substance: FOLLITROPIN ALFA
     Indication: Infertility female
     Route: 058
     Dates: start: 20220627, end: 20220708

REACTIONS (1)
  - Ovarian hyperstimulation syndrome [Recovering/Resolving]

NARRATIVE: CASE EVENT DATE: 20220722
